FAERS Safety Report 14881867 (Version 3)
Quarter: 2019Q1

REPORT INFORMATION
  Report Type: Spontaneous
  Country: US (occurrence: US)
  Receive Date: 20180511
  Receipt Date: 20190128
  Transmission Date: 20190417
  Serious: No
  Sender: FDA-Public Use
  Company Number: US-NAPPMUNDI-USA-2018-0143522

PATIENT
  Sex: Male

DRUGS (2)
  1. MORPHINE SULFATE (SIMILAR TO NDA 19-516) [Suspect]
     Active Substance: MORPHINE SULFATE
     Indication: ABDOMINAL PAIN
     Dosage: UNK, QID
     Route: 048
     Dates: start: 2013, end: 2014
  2. DILAUDID [Suspect]
     Active Substance: HYDROMORPHONE HYDROCHLORIDE
     Indication: ABDOMINAL PAIN
     Dosage: UNK, QID
     Route: 048
     Dates: start: 2013, end: 2014

REACTIONS (10)
  - Overdose [Unknown]
  - Hypoaesthesia [Not Recovered/Not Resolved]
  - Drug withdrawal syndrome [Recovered/Resolved]
  - Somnolence [Recovered/Resolved]
  - Panic reaction [Recovered/Resolved]
  - Ear pain [Not Recovered/Not Resolved]
  - Anxiety [Recovered/Resolved]
  - Nervousness [Recovered/Resolved]
  - Dark circles under eyes [Recovered/Resolved]
  - Musculoskeletal stiffness [Not Recovered/Not Resolved]

NARRATIVE: CASE EVENT DATE: 2013
